FAERS Safety Report 18869029 (Version 3)
Quarter: 2021Q1

REPORT INFORMATION
  Report Type: Report from Study
  Country: None (occurrence: IL)
  Receive Date: 20210210
  Receipt Date: 20210216
  Transmission Date: 20210420
  Serious: Yes (Death, Hospitalization, Other)
  Sender: FDA-Public Use
  Company Number: IL-ABBVIE-21K-082-3763786-00

PATIENT
  Sex: Male

DRUGS (2)
  1. DUODOPA [Suspect]
     Active Substance: CARBIDOPA\LEVODOPA
     Indication: PARKINSON^S DISEASE
     Route: 050
     Dates: start: 20170725
  2. DUODOPA [Suspect]
     Active Substance: CARBIDOPA\LEVODOPA
     Dosage: MORNING DOSAGE(ML)9.0,CONTINUOUS DOSAGE(ML/H)3.1,EXTRA DOSAGE1.3?STRENGTH20 MG/ML 5 MG/ML
     Route: 050
     Dates: end: 202102

REACTIONS (3)
  - Urinary retention [Unknown]
  - Septic shock [Fatal]
  - Pyrexia [Unknown]
